FAERS Safety Report 9021588 (Version 4)
Quarter: 2013Q3

REPORT INFORMATION
  Report Type: Spontaneous
  Country: US (occurrence: US)
  Receive Date: 20130119
  Receipt Date: 20130822
  Transmission Date: 20140515
  Serious: Yes (Hospitalization, Other)
  Sender: FDA-Public Use
  Company Number: US-MERCK-1301USA008743

PATIENT
  Age: 64 Year
  Sex: Female

DRUGS (5)
  1. PEGINTRON [Suspect]
     Indication: HEPATITIS C
     Dosage: UNK
     Dates: start: 20130104
  2. VICTRELIS [Suspect]
     Indication: HEPATITIS C
     Dosage: UNK
     Route: 048
     Dates: start: 20130208
  3. RIBASPHERE [Suspect]
     Indication: HEPATITIS C
     Dosage: UNK
     Dates: start: 20130104
  4. CLONAZEPAM [Concomitant]
  5. LISINOPRIL [Concomitant]
     Dosage: 20 MG, WITHOUT DIURETIC

REACTIONS (36)
  - Hypertension [Unknown]
  - Dehydration [Unknown]
  - Dehydration [Unknown]
  - Dehydration [Unknown]
  - Chills [Unknown]
  - Listless [Unknown]
  - Malnutrition [Unknown]
  - Somnolence [Unknown]
  - Memory impairment [Unknown]
  - Hypertension [Unknown]
  - Headache [Unknown]
  - Decreased appetite [Unknown]
  - Fatigue [Unknown]
  - Malaise [Unknown]
  - Depression [Unknown]
  - Anxiety [Unknown]
  - Disturbance in attention [Unknown]
  - Dizziness [Unknown]
  - Chills [Unknown]
  - Decreased appetite [Unknown]
  - Asthenia [Unknown]
  - Fatigue [Unknown]
  - Renal disorder [Unknown]
  - Abdominal distension [Unknown]
  - Gastrointestinal disorder [Unknown]
  - Abdominal pain [Unknown]
  - Weight decreased [Unknown]
  - Gastrooesophageal reflux disease [Unknown]
  - Nausea [Unknown]
  - Hyperhidrosis [Unknown]
  - Angiopathy [Unknown]
  - Anxiety [Unknown]
  - Fatigue [Unknown]
  - Anaemia [Unknown]
  - Headache [Unknown]
  - Dyspnoea [Unknown]
